FAERS Safety Report 19937579 (Version 1)
Quarter: 2021Q4

REPORT INFORMATION
  Report Type: Other
  Country: RU (occurrence: RU)
  Receive Date: 20211011
  Receipt Date: 20211011
  Transmission Date: 20220303
  Serious: Yes (Other)
  Sender: FDA-Public Use
  Company Number: RU-GLENMARK PHARMACEUTICALS-2021GMK068275

PATIENT

DRUGS (5)
  1. LEVOFLOXACIN [Suspect]
     Active Substance: LEVOFLOXACIN
     Indication: Tuberculosis
     Dosage: 500 MILLIGRAM
     Route: 048
     Dates: start: 20210328, end: 20210909
  2. CYCLOSERINE [Concomitant]
     Active Substance: CYCLOSERINE
     Indication: Tuberculosis
     Dosage: UNK
     Route: 048
     Dates: start: 20210327
  3. PYRAZINAMIDE [Concomitant]
     Active Substance: PYRAZINAMIDE
     Indication: Tuberculosis
     Dosage: UNK
     Route: 048
     Dates: start: 20210327
  4. CAPREOMYCIN [Concomitant]
     Active Substance: CAPREOMYCIN
     Indication: Tuberculosis
     Dosage: UNK
     Route: 030
     Dates: start: 20210327
  5. AMINOSALICYLIC ACID [Concomitant]
     Active Substance: AMINOSALICYLIC ACID
     Indication: Tuberculosis
     Dosage: UNK
     Route: 048
     Dates: start: 20210327

REACTIONS (5)
  - Blood creatinine increased [Recovering/Resolving]
  - Arthralgia [Recovering/Resolving]
  - Diarrhoea [Recovering/Resolving]
  - Abdominal pain upper [Recovering/Resolving]
  - Product use in unapproved indication [Unknown]

NARRATIVE: CASE EVENT DATE: 20210909
